FAERS Safety Report 16548092 (Version 2)
Quarter: 2019Q3

REPORT INFORMATION
  Report Type: Spontaneous
  Country: GB (occurrence: GB)
  Receive Date: 20190709
  Receipt Date: 20190806
  Transmission Date: 20191004
  Serious: Yes (Hospitalization)
  Sender: FDA-Public Use
  Company Number: GB-MYLANLABS-2017M1038720

PATIENT
  Age: 27 Year
  Sex: Female

DRUGS (1)
  1. CLOZARIL [Suspect]
     Active Substance: CLOZAPINE
     Indication: SCHIZOPHRENIA
     Dosage: UNK
     Route: 048
     Dates: start: 20170607, end: 20190702

REACTIONS (4)
  - Urinary tract infection [Unknown]
  - Full blood count abnormal [Unknown]
  - Neutrophil count decreased [Recovered/Resolved]
  - Mean cell volume increased [Unknown]

NARRATIVE: CASE EVENT DATE: 201706
